FAERS Safety Report 19514355 (Version 2)
Quarter: 2023Q1

REPORT INFORMATION
  Report Type: Spontaneous
  Country: US (occurrence: None)
  Receive Date: 20210709
  Receipt Date: 20230309
  Transmission Date: 20230418
  Serious: Yes (Other)
  Sender: FDA-Public Use
  Company Number: 2021A586899

PATIENT
  Age: 51 Year
  Sex: Female

DRUGS (40)
  1. OMEPRAZOLE [Suspect]
     Active Substance: OMEPRAZOLE
     Indication: Gastrooesophageal reflux disease
     Dosage: GENERIC
     Route: 065
     Dates: start: 2000
  2. OMEPRAZOLE [Suspect]
     Active Substance: OMEPRAZOLE
     Indication: Dyspepsia
     Dosage: GENERIC
     Route: 065
     Dates: start: 2000
  3. OMEPRAZOLE [Suspect]
     Active Substance: OMEPRAZOLE
     Indication: Gastrooesophageal reflux disease
     Dosage: GENERIC
     Route: 065
     Dates: start: 2000
  4. OMEPRAZOLE [Suspect]
     Active Substance: OMEPRAZOLE
     Indication: Peptic ulcer
     Dosage: GENERIC
     Route: 065
     Dates: start: 2000
  5. OMEPRAZOLE [Suspect]
     Active Substance: OMEPRAZOLE
     Indication: Gastrooesophageal reflux disease
     Dosage: GENERIC- DELAYED RELEASE20.0MG UNKNOWN
     Route: 048
  6. OMEPRAZOLE [Suspect]
     Active Substance: OMEPRAZOLE
     Indication: Dyspepsia
     Dosage: GENERIC- DELAYED RELEASE20.0MG UNKNOWN
     Route: 048
  7. OMEPRAZOLE [Suspect]
     Active Substance: OMEPRAZOLE
     Indication: Gastrooesophageal reflux disease
     Dosage: GENERIC- DELAYED RELEASE20.0MG UNKNOWN
     Route: 048
  8. OMEPRAZOLE [Suspect]
     Active Substance: OMEPRAZOLE
     Indication: Peptic ulcer
     Dosage: GENERIC- DELAYED RELEASE20.0MG UNKNOWN
     Route: 048
  9. PANTOPRAZOLE [Suspect]
     Active Substance: PANTOPRAZOLE
     Indication: Gastrooesophageal reflux disease
     Dosage: GENERIC
     Route: 065
     Dates: start: 2000
  10. PANTOPRAZOLE [Suspect]
     Active Substance: PANTOPRAZOLE
     Indication: Dyspepsia
     Dosage: GENERIC
     Route: 065
     Dates: start: 2000
  11. PANTOPRAZOLE [Suspect]
     Active Substance: PANTOPRAZOLE
     Indication: Gastrooesophageal reflux disease
     Dosage: GENERIC
     Route: 065
     Dates: start: 2000
  12. PANTOPRAZOLE [Suspect]
     Active Substance: PANTOPRAZOLE
     Indication: Peptic ulcer
     Dosage: GENERIC
     Route: 065
     Dates: start: 2000
  13. PANTOPRAZOLE [Suspect]
     Active Substance: PANTOPRAZOLE
     Indication: Gastrooesophageal reflux disease
     Dosage: GENERIC
     Route: 048
     Dates: start: 2000
  14. PANTOPRAZOLE [Suspect]
     Active Substance: PANTOPRAZOLE
     Indication: Dyspepsia
     Dosage: GENERIC
     Route: 048
     Dates: start: 2000
  15. PANTOPRAZOLE [Suspect]
     Active Substance: PANTOPRAZOLE
     Indication: Gastrooesophageal reflux disease
     Dosage: GENERIC
     Route: 048
     Dates: start: 2000
  16. PANTOPRAZOLE [Suspect]
     Active Substance: PANTOPRAZOLE
     Indication: Peptic ulcer
     Dosage: GENERIC
     Route: 048
     Dates: start: 2000
  17. DILTIAZEM [Concomitant]
     Active Substance: DILTIAZEM
  18. CALCITONIN [Concomitant]
     Active Substance: CALCITONIN
  19. SYNTHROID [Concomitant]
     Active Substance: LEVOTHYROXINE SODIUM
  20. VASOTEC [Concomitant]
     Active Substance: ENALAPRIL MALEATE
  21. SERTRALINE HYDROCHLORIDE [Concomitant]
     Active Substance: SERTRALINE HYDROCHLORIDE
  22. POTASSIUM CHLORIDE [Concomitant]
     Active Substance: POTASSIUM CHLORIDE
  23. BUPROPION HYDROCHLORIDE [Concomitant]
     Active Substance: BUPROPION HYDROCHLORIDE
  24. MORPHINE SULFATE [Concomitant]
     Active Substance: MORPHINE SULFATE
  25. DIPHENHYDRAMINE HYDROCHLORIDE [Concomitant]
     Active Substance: DIPHENHYDRAMINE HYDROCHLORIDE
  26. CARDIZEM [Concomitant]
     Active Substance: DILTIAZEM HYDROCHLORIDE
  27. PENICILLIN [Concomitant]
     Active Substance: PENICILLIN
  28. SUCRALFATE [Concomitant]
     Active Substance: SUCRALFATE
  29. ACETAMINOPHEN\HYDROCODONE BITARTRATE [Concomitant]
     Active Substance: ACETAMINOPHEN\HYDROCODONE BITARTRATE
  30. LEVOTHYROXINE SODIUM [Concomitant]
     Active Substance: LEVOTHYROXINE SODIUM
  31. ALBUTEROL SULFATE [Concomitant]
     Active Substance: ALBUTEROL SULFATE
  32. CORTISOL [Concomitant]
     Active Substance: HYDROCORTISONE
  33. MAGNESIUM CITRATE [Concomitant]
     Active Substance: MAGNESIUM CITRATE
  34. CRESTOR [Concomitant]
     Active Substance: ROSUVASTATIN CALCIUM
  35. KENALOG [Concomitant]
     Active Substance: TRIAMCINOLONE ACETONIDE
  36. CYTOMEL [Concomitant]
     Active Substance: LIOTHYRONINE SODIUM
  37. VITAMIN C [Concomitant]
     Active Substance: ASCORBIC ACID
  38. PROPOFOL [Concomitant]
     Active Substance: PROPOFOL
  39. LACTATED RINGERS SOLUTION [Concomitant]
     Active Substance: CALCIUM CHLORIDE\POTASSIUM CHLORIDE\SODIUM CHLORIDE\SODIUM LACTATE
  40. GLYCOPYRROLATE [Concomitant]
     Active Substance: GLYCOPYRROLATE

REACTIONS (4)
  - Gastric cancer [Unknown]
  - Gastric neuroendocrine carcinoma [Unknown]
  - Adenocarcinoma gastric [Unknown]
  - Colorectal adenoma [Unknown]

NARRATIVE: CASE EVENT DATE: 20070101
